FAERS Safety Report 25966235 (Version 1)
Quarter: 2025Q4

REPORT INFORMATION
  Report Type: Report from Study
  Country: US (occurrence: US)
  Receive Date: 20251028
  Receipt Date: 20251028
  Transmission Date: 20260118
  Serious: Yes (Other)
  Sender: ABBVIE
  Company Number: US-ABBVIE-6460620

PATIENT
  Age: 39 Year
  Sex: Female

DRUGS (13)
  1. SKYRIZI [Suspect]
     Active Substance: RISANKIZUMAB-RZAA
     Indication: Crohn^s disease
     Dosage: 360 MG/2.4 ML(150 MG/ML)
     Route: 058
     Dates: start: 20240516
  2. MIRTAZAPINE [Concomitant]
     Active Substance: MIRTAZAPINE
     Indication: Product used for unknown indication
     Dosage: TAKE 1 TABLET(15 MG TOTAL) BY MOUTH NIGHTLY FOR 360 DAYS
     Route: 048
  3. LINACLOTIDE [Concomitant]
     Active Substance: LINACLOTIDE
     Indication: Product used for unknown indication
     Dosage: CAP
     Route: 048
  4. FLUDROCORTISONE [Concomitant]
     Active Substance: FLUDROCORTISONE
     Indication: Product used for unknown indication
     Dosage: TAKE 1 TABLET
     Route: 048
  5. VITAMIN D3 [Concomitant]
     Active Substance: CHOLECALCIFEROL
     Indication: Product used for unknown indication
     Dosage: (1,000 UNIT) ?TAKE 1 CAPSULE BY MOUTH IN THE MORNING.
     Route: 048
  6. ONDANSETRON [Concomitant]
     Active Substance: ONDANSETRON
     Indication: Nausea
     Dosage: TAKE 1 TABLET(8 MG TOTAL) BY MOUTH EVERY 8(EIGHT) HOURS AS NEEDED
     Route: 048
  7. BIOTIN [Concomitant]
     Active Substance: BIOTIN
     Indication: Product used for unknown indication
     Route: 048
  8. VITAMINS [Concomitant]
     Active Substance: VITAMINS
     Indication: Product used for unknown indication
     Dosage: TAKE 1 CAPSULE BY MOUTH DAILY
     Route: 048
  9. OMEPRAZOLE [Concomitant]
     Active Substance: OMEPRAZOLE
     Indication: Product used for unknown indication
     Dosage: TAKE 1 CAPSULE(40 MG TOTAL) BY MOUTH DAILY
     Route: 048
  10. PREGABALIN [Concomitant]
     Active Substance: PREGABALIN
     Indication: Product used for unknown indication
     Dosage: TAKE 1 CAPSULE(50 MG TOTAL) BY MOUTH 2(TWO) TIMES A DAY
     Route: 048
  11. LEVONORGESTREL [Concomitant]
     Active Substance: LEVONORGESTREL
     Indication: Product used for unknown indication
     Dosage: 21 MCG/24HR(UP TO 8 YRS) 52 MG IUD?1 EACH BY INTRAUTERINE ROUTE ONCE
     Route: 015
  12. METHYLPREDNISOLONE [Concomitant]
     Active Substance: METHYLPREDNISOLONE
     Indication: Product used for unknown indication
  13. ACETAMINOPHEN\HYDROCODONE [Concomitant]
     Active Substance: ACETAMINOPHEN\HYDROCODONE
     Indication: Product used for unknown indication
     Dosage: 5- 325 MG

REACTIONS (8)
  - Foot operation [Unknown]
  - Injection site pain [Recovered/Resolved]
  - Crohn^s disease [Unknown]
  - Osteochondrosis [Unknown]
  - Ovarian cyst [Unknown]
  - Asthma [Unknown]
  - Postural orthostatic tachycardia syndrome [Unknown]
  - Laryngeal dyskinesia [Unknown]

NARRATIVE: CASE EVENT DATE: 20250101
